FAERS Safety Report 8050971-X (Version None)
Quarter: 2012Q1

REPORT INFORMATION
  Report Type: 
  Country: None (occurrence: None)
  Receive Date: 20120117
  Receipt Date: 20120111
  Transmission Date: 20120608
  Serious: Yes (Hospitalization)
  Sender: FDA-Public Use
  Company Number: PHEH2012US001222

PATIENT
  Sex: Male

DRUGS (1)
  1. EXJADE [Suspect]
     Indication: CHRONIC LYMPHOCYTIC LEUKAEMIA
     Dosage: 1500 MG,DAILY
     Route: 048
     Dates: start: 20111208

REACTIONS (3)
  - CHEST PAIN [None]
  - RED BLOOD CELL COUNT DECREASED [None]
  - DYSPNOEA [None]
